FAERS Safety Report 12617591 (Version 8)
Quarter: 2017Q2

REPORT INFORMATION
  Report Type: Report from Study
  Country: IQ (occurrence: IQ)
  Receive Date: 20160803
  Receipt Date: 20170410
  Transmission Date: 20170830
  Serious: Yes (Other)
  Sender: FDA-Public Use
  Company Number: PHHY2016IQ105118

PATIENT
  Sex: Male

DRUGS (1)
  1. TASIGNA [Suspect]
     Active Substance: NILOTINIB
     Indication: CHRONIC MYELOID LEUKAEMIA
     Dosage: 800 MG, QD (DAY)
     Route: 048
     Dates: start: 201605

REACTIONS (18)
  - Epistaxis [Recovered/Resolved]
  - Pigmentation disorder [Recovered/Resolved]
  - Splenomegaly [Not Recovered/Not Resolved]
  - Granuloma skin [Not Recovered/Not Resolved]
  - Dyspnoea [Not Recovered/Not Resolved]
  - Fatigue [Recovering/Resolving]
  - Investigation abnormal [Not Recovered/Not Resolved]
  - Incorrect drug administration duration [Recovered/Resolved]
  - Vomiting [Not Recovered/Not Resolved]
  - Nephrolithiasis [Not Recovered/Not Resolved]
  - Abdominal pain [Not Recovered/Not Resolved]
  - Memory impairment [Unknown]
  - Pruritus [Unknown]
  - Tachycardia [Recovered/Resolved]
  - Palpitations [Unknown]
  - Chest pain [Unknown]
  - Headache [Not Recovered/Not Resolved]
  - Dizziness [Not Recovered/Not Resolved]

NARRATIVE: CASE EVENT DATE: 20160816
